FAERS Safety Report 8019813-2 (Version None)
Quarter: 2012Q1

REPORT INFORMATION
  Report Type: 
  Country: None (occurrence: None)
  Receive Date: 20120103
  Receipt Date: 20111229
  Transmission Date: 20120608
  Serious: Yes (Congenital Anomaly, Other)
  Sender: FDA-Public Use
  Company Number: US-PFIZER INC-2011317287

PATIENT
  Sex: Female
  Weight: 82 kg

DRUGS (1)
  1. DILANTIN [Suspect]
     Indication: CONVULSION
     Dosage: UNK
     Route: 064

REACTIONS (12)
  - OCULAR HYPERAEMIA [None]
  - SLEEP APNOEA SYNDROME [None]
  - FOOT DEFORMITY [None]
  - NAIL DISORDER [None]
  - EXTRASKELETAL OSSIFICATION [None]
  - NOSE DEFORMITY [None]
  - NIPPLE DISORDER [None]
  - FOETAL EXPOSURE DURING PREGNANCY [None]
  - PELVIC DEFORMITY [None]
  - HYPERTENSION [None]
  - ASPERGER'S DISORDER [None]
  - MUSCLE DISORDER [None]
